FAERS Safety Report 17032568 (Version 1)
Quarter: 2019Q4

REPORT INFORMATION
  Report Type: Spontaneous
  Country: US (occurrence: US)
  Receive Date: 20191114
  Receipt Date: 20191114
  Transmission Date: 20200122
  Serious: No
  Sender: FDA-Public Use
  Company Number: US-PERRIGO-19US012951

PATIENT
  Age: 77 Year
  Sex: Female

DRUGS (2)
  1. DESONIDE. [Suspect]
     Active Substance: DESONIDE
     Indication: EAR DISORDER
  2. DESONIDE. [Suspect]
     Active Substance: DESONIDE
     Indication: SCAR
     Dosage: THIN LAYER, QD
     Route: 001
     Dates: start: 2009

REACTIONS (3)
  - Off label use [Unknown]
  - Ear pain [Unknown]
  - Drug ineffective [Unknown]

NARRATIVE: CASE EVENT DATE: 2009
